FAERS Safety Report 20682317 (Version 1)
Quarter: 2022Q2

REPORT INFORMATION
  Report Type: Other
  Country: None (occurrence: IL)
  Receive Date: 20220407
  Receipt Date: 20220407
  Transmission Date: 20220721
  Serious: Yes (Life-Threatening, Other)
  Sender: FDA-Public Use
  Company Number: IL-Y-mAbs Therapeutics-2127474

PATIENT
  Age: 26 Year
  Sex: Male
  Weight: 60 kg

DRUGS (17)
  1. DANYELZA [Suspect]
     Active Substance: NAXITAMAB-GQGK
     Indication: Neuroblastoma recurrent
     Route: 042
     Dates: start: 20211215
  2. LEUKINE [Concomitant]
     Active Substance: SARGRAMOSTIM
  3. IRINOTECAN HYDROCHLORIDE [Concomitant]
     Active Substance: IRINOTECAN HYDROCHLORIDE
  4. TEMOZOLOMIDE [Concomitant]
     Active Substance: TEMOZOLOMIDE
  5. OXYCODONE. [Concomitant]
     Active Substance: OXYCODONE HYDROCHLORIDE
  6. CLONAZEPAM [Concomitant]
     Active Substance: CLONAZEPAM
  7. KETAMINE HYDROCHLORIDE [Concomitant]
     Active Substance: KETAMINE HYDROCHLORIDE
  8. OXYGEN [Concomitant]
     Active Substance: OXYGEN
  9. CITRIC BUFFERED NORMAL SALINE [Concomitant]
     Active Substance: ANHYDROUS CITRIC ACID
  10. PREDNISONE [Concomitant]
     Active Substance: PREDNISONE
  11. CYCLOPHOSPHAMIDE [Concomitant]
     Active Substance: CYCLOPHOSPHAMIDE
  12. TOPOTECAN HYDROCHLORIDE [Concomitant]
     Active Substance: TOPOTECAN HYDROCHLORIDE
  13. OXYCODONE. [Concomitant]
     Active Substance: OXYCODONE HYDROCHLORIDE
  14. MORPHINE SULFATE [Concomitant]
     Active Substance: MORPHINE SULFATE
  15. FEXOFENADINE HYDROCHLORIDE [Concomitant]
     Active Substance: FEXOFENADINE HYDROCHLORIDE
  16. METAMIZOLE SODIUM [Concomitant]
     Active Substance: METAMIZOLE SODIUM
  17. ACETAMINOPHEN [Concomitant]
     Active Substance: ACETAMINOPHEN

REACTIONS (21)
  - Anaphylactic reaction [Unknown]
  - Swelling face [Unknown]
  - Swollen tongue [Unknown]
  - Pain [Recovered/Resolved]
  - Depressed level of consciousness [Unknown]
  - Pain [Unknown]
  - Oxygen saturation decreased [Recovered/Resolved]
  - Dysphonia [Unknown]
  - Rash papular [Recovered/Resolved]
  - Hypersensitivity [Unknown]
  - Somnolence [Unknown]
  - Hypertension [Unknown]
  - Pyrexia [Unknown]
  - Full blood count decreased [Unknown]
  - Dizziness [Unknown]
  - Posterior reversible encephalopathy syndrome [Unknown]
  - Neutropenia [Unknown]
  - Tachycardia [Unknown]
  - Paraesthesia [Recovered/Resolved with Sequelae]
  - Pallor [Recovered/Resolved]
  - Cyanosis [Recovered/Resolved]

NARRATIVE: CASE EVENT DATE: 20220101
